FAERS Safety Report 14608668 (Version 1)
Quarter: 2018Q1

REPORT INFORMATION
  Report Type: Spontaneous
  Country: US (occurrence: US)
  Receive Date: 20180307
  Receipt Date: 20180307
  Transmission Date: 20180509
  Serious: No
  Sender: FDA-Public Use
  Company Number: US-ABBVIE-17K-163-2115876-00

PATIENT
  Sex: Male

DRUGS (1)
  1. ANDROGEL [Suspect]
     Active Substance: TESTOSTERONE
     Indication: PRODUCT USED FOR UNKNOWN INDICATION
     Dosage: 2 PUMPS A DAY
     Route: 061
     Dates: start: 2011

REACTIONS (4)
  - Drug dispensing error [Recovered/Resolved]
  - Poor quality drug administered [Not Recovered/Not Resolved]
  - Blood testosterone decreased [Recovered/Resolved]
  - Blood testosterone increased [Not Recovered/Not Resolved]
